FAERS Safety Report 25191222 (Version 1)
Quarter: 2025Q2

REPORT INFORMATION
  Report Type: Spontaneous
  Country: JP (occurrence: JP)
  Receive Date: 20250411
  Receipt Date: 20250411
  Transmission Date: 20250716
  Serious: Yes (Death, Life-Threatening, Hospitalization, Other)
  Sender: BRECKENRIDGE
  Company Number: JP-Breckenridge Pharmaceutical, Inc.-2174721

PATIENT
  Age: 87 Year
  Sex: Female
  Weight: 65 kg

DRUGS (10)
  1. RIVASTIGMINE [Suspect]
     Active Substance: RIVASTIGMINE
     Indication: Dementia
  2. MEMANTINE [Suspect]
     Active Substance: MEMANTINE
  3. CARBOCYSTEINE [Concomitant]
     Active Substance: CARBOCYSTEINE
  4. DEXTROMETHORPHAN HYDROBROMIDE [Concomitant]
     Active Substance: DEXTROMETHORPHAN HYDROBROMIDE
  5. TRANEXAMIC ACID [Concomitant]
     Active Substance: TRANEXAMIC ACID
  6. JANUVIA [Concomitant]
     Active Substance: SITAGLIPTIN PHOSPHATE
  7. ACETAMINOPHEN [Concomitant]
     Active Substance: ACETAMINOPHEN
  8. AMLODIPINE [Concomitant]
     Active Substance: AMLODIPINE BESYLATE
  9. ESOMEPRAZOLE. [Concomitant]
     Active Substance: ESOMEPRAZOLE MAGNESIUM
  10. ASPIRIN [Concomitant]
     Active Substance: ASPIRIN

REACTIONS (8)
  - Atrioventricular block complete [Fatal]
  - Death [Fatal]
  - Renal failure [Fatal]
  - Blood creatinine increased [Not Recovered/Not Resolved]
  - Seizure [Unknown]
  - Loss of consciousness [Recovered/Resolved]
  - Seizure [Recovering/Resolving]
  - Malaise [Not Recovered/Not Resolved]
